FAERS Safety Report 5759124-9 (Version None)
Quarter: 2008Q2

REPORT INFORMATION
  Report Type: 
  Country: None (occurrence: None)
  Receive Date: 20080604
  Receipt Date: 20080522
  Transmission Date: 20081010
  Serious: No
  Sender: FDA-Public Use
  Company Number: US-BOEHRINGER INGELHEIM GMBH, GERMANY-2008-BP-08146BP

PATIENT
  Sex: Male

DRUGS (5)
  1. SPIRIVA [Suspect]
     Indication: CHRONIC OBSTRUCTIVE PULMONARY DISEASE
     Dates: start: 20070101
  2. SPIRIVA [Suspect]
     Indication: ASTHMA
  3. ALBUTEROL SULFATE [Concomitant]
  4. ATROVENT HFA [Concomitant]
  5. COMBIVENT [Concomitant]

REACTIONS (1)
  - DRUG INEFFECTIVE [None]
